FAERS Safety Report 18821898 (Version 2)
Quarter: 2021Q1

REPORT INFORMATION
  Report Type: Report from Study
  Country: CA (occurrence: CA)
  Receive Date: 20210202
  Receipt Date: 20210209
  Transmission Date: 20210419
  Serious: Yes (Other)
  Sender: FDA-Public Use
  Company Number: NVSC2020CA261465

PATIENT
  Age: 69 Year
  Sex: Male

DRUGS (5)
  1. ILARIS [Suspect]
     Active Substance: CANAKINUMAB
     Indication: AUTOINFLAMMATORY DISEASE
     Dosage: 150 MG, EVERY 4 WEEK
     Route: 058
     Dates: start: 20210111, end: 20210111
  2. COLCHICINE. [Suspect]
     Active Substance: COLCHICINE
     Indication: PRODUCT USED FOR UNKNOWN INDICATION
     Dosage: UNK
     Route: 065
  3. PREDNISONE. [Concomitant]
     Active Substance: PREDNISONE
     Indication: PRODUCT USED FOR UNKNOWN INDICATION
     Dosage: 10 TO 20 MG
     Route: 065
  4. ILARIS [Suspect]
     Active Substance: CANAKINUMAB
     Indication: PERICARDITIS
  5. KINERET [Concomitant]
     Active Substance: ANAKINRA
     Indication: PRODUCT USED FOR UNKNOWN INDICATION
     Dosage: UNK
     Route: 065

REACTIONS (11)
  - Hypersomnia [Recovering/Resolving]
  - Fatigue [Recovering/Resolving]
  - C-reactive protein increased [Recovering/Resolving]
  - Asthenia [Recovering/Resolving]
  - Urinary tract infection [Recovering/Resolving]
  - Cardiac disorder [Recovering/Resolving]
  - Fall [Recovering/Resolving]
  - Product use in unapproved indication [Unknown]
  - Rheumatoid arthritis [Recovering/Resolving]
  - Decreased activity [Unknown]
  - Treatment failure [Unknown]

NARRATIVE: CASE EVENT DATE: 20210112
